FAERS Safety Report 7800930-4 (Version None)
Quarter: 2011Q4

REPORT INFORMATION
  Report Type: 
  Country: None (occurrence: None)
  Receive Date: 20111006
  Receipt Date: 20110927
  Transmission Date: 20120403
  Serious: Yes (Hospitalization)
  Sender: FDA-Public Use
  Company Number: JP-BRISTOL-MYERS SQUIBB COMPANY-15542764

PATIENT
  Age: 74 Year
  Sex: Male
  Weight: 55 kg

DRUGS (14)
  1. DEXAMETHASONE SODIUM PHOSPHATE [Concomitant]
     Route: 042
     Dates: start: 20101124
  2. KYTRIL [Concomitant]
     Indication: ANTIEMETIC SUPPORTIVE CARE
     Route: 042
     Dates: start: 20101124
  3. CLOBETASOL PROPIONATE [Concomitant]
     Dosage: SCALP LOTION, 0.05%
     Route: 061
     Dates: start: 20110112
  4. ERBITUX [Suspect]
     Indication: COLORECTAL CANCER
     Dosage: 250MG/M2,125MG/M2 1IN 1 WEEK,1DEC10-16MAR11,24MAR11-24MAR11,30MAR11-30MAR11 ONG
     Route: 042
     Dates: start: 20101124
  5. DECADRON [Concomitant]
     Dosage: TAB
     Route: 048
     Dates: start: 20101127, end: 20101227
  6. LEUCOVORIN CALCIUM [Concomitant]
     Indication: COLON CANCER
     Dosage: 24NV10-24NV10,8DC-8DC10310MG,27DC-27DC10320MG,19JAN-19JAN11310MG,23FEB-9MAR11320MG,24MAR11- 150MG
     Dates: start: 20101124
  7. POLARAMINE [Concomitant]
     Route: 042
     Dates: start: 20101124
  8. KRESTIN [Concomitant]
     Indication: COLON CANCER
     Route: 048
     Dates: start: 20101222
  9. EMEND [Concomitant]
     Indication: ANTIEMETIC SUPPORTIVE CARE
     Dosage: TAB,1 DF = 125- 80 MG
     Dates: start: 20101127
  10. EURAX [Concomitant]
     Route: 061
     Dates: start: 20101208
  11. IRINOTECAN HCL [Concomitant]
     Indication: COLON CANCER
     Dosage: 24NOV10-24NOV10,8DEC10-8DEC10=230MG,19JAN11-19JAN11=230MG,23FEB11-23FEB11,24MAR11- 110MG
     Route: 042
     Dates: start: 20101124
  12. FLUOROURACIL [Concomitant]
     Indication: COLON CANCER
     Dosage: 24NV-24NV10,8DC-8DC10=630MG,27DC-27DC10,27DC-27DC10,19JA-19JA11,23FEB-23FB11,24MR- ,IVDRIP
     Route: 040
     Dates: start: 20101124
  13. UREA [Concomitant]
  14. ECLAR [Concomitant]
     Dosage: OINTMENT,.3%
     Route: 061
     Dates: start: 20101208

REACTIONS (1)
  - PULMONARY ARTERY THROMBOSIS [None]
